FAERS Safety Report 6819073-1 (Version None)
Quarter: 2010Q2

REPORT INFORMATION
  Report Type: 
  Country: None (occurrence: None)
  Receive Date: 20100630
  Receipt Date: 20100618
  Transmission Date: 20101027
  Serious: Yes (Hospitalization, Other)
  Sender: FDA-Public Use
  Company Number: 7008527

PATIENT
  Age: 59 Year
  Sex: Female
  Weight: 93 kg

DRUGS (4)
  1. REBIF [Suspect]
     Indication: MULTIPLE SCLEROSIS
     Dosage: 44 MCG, 3 IN 1 WK, SUBCUTANEOUS
     Route: 058
     Dates: start: 20061129
  2. METFORMIN HCL [Concomitant]
  3. GLIPIZIDE [Concomitant]
  4. MULTIPLE UNSPECIFIED MEDICATIONS (ALL OTHER THERPEUTIC PRODUCTS) [Concomitant]

REACTIONS (12)
  - CULTURE POSITIVE [None]
  - DEAFNESS [None]
  - DIARRHOEA HAEMORRHAGIC [None]
  - EAR INFECTION [None]
  - EAR PAIN [None]
  - HAEMATOCRIT DECREASED [None]
  - HAEMOGLOBIN DECREASED [None]
  - NO THERAPEUTIC RESPONSE [None]
  - RED BLOOD CELL COUNT DECREASED [None]
  - RENAL FAILURE [None]
  - STAPHYLOCOCCAL INFECTION [None]
  - TYMPANIC MEMBRANE PERFORATION [None]
